FAERS Safety Report 21177260 (Version 3)
Quarter: 2022Q3

REPORT INFORMATION
  Report Type: Spontaneous
  Country: RU (occurrence: RU)
  Receive Date: 20220805
  Receipt Date: 20220922
  Transmission Date: 20221027
  Serious: No
  Sender: FDA-Public Use
  Company Number: RU-009507513-2208RUS000191

PATIENT
  Sex: Male

DRUGS (1)
  1. LAGEVRIO [Suspect]
     Active Substance: MOLNUPIRAVIR
     Indication: COVID-19 treatment
     Dosage: 4 CAPSULES, 200 MG EACH
     Route: 048
     Dates: start: 20220727, end: 20220729

REACTIONS (4)
  - Abdominal pain upper [Recovered/Resolved]
  - Dyspepsia [Recovered/Resolved]
  - Abdominal pain [Recovered/Resolved]
  - Product use issue [Unknown]

NARRATIVE: CASE EVENT DATE: 20220728
